FAERS Safety Report 9130349 (Version 3)
Quarter: 2013Q3

REPORT INFORMATION
  Report Type: Spontaneous
  Country: JP (occurrence: JP)
  Receive Date: 20130301
  Receipt Date: 20130808
  Transmission Date: 20140515
  Serious: Yes (Death, Life-Threatening)
  Sender: FDA-Public Use
  Company Number: JP-AMGEN-JPNSP2013013746

PATIENT
  Age: 68 Year
  Sex: Male
  Weight: 60 kg

DRUGS (11)
  1. VECTIBIX [Suspect]
     Indication: RECTAL CANCER
     Dosage: 350 MG, Q2WK
     Route: 041
     Dates: start: 20120130, end: 20121122
  2. ELPLAT [Suspect]
     Indication: RECTAL CANCER
     Dosage: 130 MG, Q2WK
     Route: 041
     Dates: start: 20120130, end: 20121122
  3. 5-FU /00098801/ [Suspect]
     Indication: RECTAL CANCER
     Dosage: 1575 MG, 2 IN 2 WEEKS
     Route: 041
     Dates: start: 20120130, end: 20121123
  4. ALOXI [Concomitant]
     Indication: PROPHYLAXIS OF NAUSEA AND VOMITING
     Dosage: 0.75 MG, Q2WK
     Route: 041
     Dates: start: 20120130, end: 20121122
  5. DECADRON                           /00016002/ [Concomitant]
     Indication: PROPHYLAXIS OF NAUSEA AND VOMITING
     Dosage: 13.2 MG, Q2WK
     Route: 041
     Dates: start: 20120130, end: 20121122
  6. CALCIUM LEVOFOLINATE [Concomitant]
     Indication: RECTAL CANCER
     Dosage: 160 MG, 2 IN 2 WEEKS
     Route: 041
     Dates: start: 20120130, end: 20121123
  7. SELBEX [Concomitant]
     Indication: GASTRITIS
     Dosage: 50 MG, TID
     Route: 048
     Dates: start: 20120128, end: 20130130
  8. JUZENTAIHOTO [Concomitant]
     Indication: MALAISE
     Dosage: 2.5 MG, TID
     Route: 048
     Dates: start: 20120131, end: 20130130
  9. MINOPEN [Concomitant]
     Indication: DERMATITIS ACNEIFORM
     Dosage: 100 MG, BID
     Route: 048
     Dates: start: 20120204, end: 20130130
  10. EMEND                              /01627301/ [Concomitant]
     Indication: PROPHYLAXIS OF NAUSEA AND VOMITING
     Dosage: UNK, 3 IN 2 WEEKS
     Route: 048
     Dates: start: 20120130, end: 20121122
  11. EMEND                              /01627301/ [Concomitant]
     Dosage: 80 MG, 2 IN 2 WEEKS
     Route: 048
     Dates: start: 20120131, end: 20121124

REACTIONS (2)
  - Rhabdomyolysis [Recovered/Resolved]
  - Shock haemorrhagic [Fatal]
